FAERS Safety Report 8163783-3 (Version None)
Quarter: 2012Q1

REPORT INFORMATION
  Report Type: 
  Country: None (occurrence: None)
  Receive Date: 20120224
  Receipt Date: 20120220
  Transmission Date: 20120608
  Serious: Yes (Death)
  Sender: FDA-Public Use
  Company Number: PHHY2012FR014737

PATIENT
  Sex: Male

DRUGS (4)
  1. GLEEVEC [Suspect]
     Indication: GASTROINTESTINAL STROMAL TUMOUR
     Dosage: 400 MG, QD
     Dates: start: 20120109, end: 20120205
  2. FUROSEMIDE [Concomitant]
     Dates: start: 20111101
  3. NEBIVOLOL HCL [Concomitant]
     Dates: start: 20111101
  4. PREVISCAN [Concomitant]
     Dates: start: 20111101

REACTIONS (5)
  - SKIN REACTION [None]
  - OEDEMA PERIPHERAL [None]
  - CARDIAC ARREST [None]
  - WEIGHT INCREASED [None]
  - ERYTHEMA [None]
